FAERS Safety Report 5188312-8 (Version None)
Quarter: 2006Q4

REPORT INFORMATION
  Report Type: 
  Country: None (occurrence: None)
  Receive Date: 20061221
  Receipt Date: 20061215
  Transmission Date: 20070319
  Serious: Yes (Hospitalization)
  Sender: FDA-Public Use
  Company Number: BE-ROCHE-475220

PATIENT
  Age: 59 Year
  Sex: Female

DRUGS (3)
  1. MYCOPHENOLATE MOFETIL [Suspect]
     Route: 048
     Dates: start: 20061015
  2. TACROLIMUS [Suspect]
     Route: 048
     Dates: start: 20061015, end: 20061109
  3. TACROLIMUS [Suspect]
     Route: 048
     Dates: start: 20061113

REACTIONS (1)
  - ACUTE ABDOMEN [None]
